FAERS Safety Report 6840431-3 (Version None)
Quarter: 2010Q3

REPORT INFORMATION
  Report Type: 
  Country: None (occurrence: None)
  Receive Date: 20100714
  Receipt Date: 20100712
  Transmission Date: 20110219
  Serious: Yes (Death, Hospitalization)
  Sender: FDA-Public Use
  Company Number: FR-WYE-G06376410

PATIENT
  Age: 84 Year
  Sex: Male

DRUGS (9)
  1. TORISEL [Suspect]
     Indication: RENAL CANCER METASTATIC
     Route: 042
     Dates: start: 20100520, end: 20100617
  2. DURAGESIC-100 [Concomitant]
     Dosage: 50 UG TOTAL DAILY
  3. DUPHALAC [Concomitant]
     Dosage: 3 DOSES TOTAL DAILY
  4. DIFFU K [Concomitant]
     Dosage: 2 DOSES TOTAL DAILY
  5. LORAZEPAM [Concomitant]
     Dosage: UNKNOWN
  6. NEXIUM [Concomitant]
     Indication: PROPHYLAXIS AGAINST GASTROINTESTINAL ULCER
  7. SUCRALFATE [Concomitant]
     Indication: PROPHYLAXIS AGAINST GASTROINTESTINAL ULCER
  8. PROSCAR [Concomitant]
     Indication: PROSTATIC ADENOMA
  9. ACTISKENAN [Concomitant]
     Dosage: ON DEMAND

REACTIONS (5)
  - GENERAL PHYSICAL HEALTH DETERIORATION [None]
  - INTERSTITIAL LUNG DISEASE [None]
  - OEDEMA PERIPHERAL [None]
  - PLEURAL EFFUSION [None]
  - SEPTIC SHOCK [None]
